FAERS Safety Report 11686072 (Version 1)
Quarter: 2015Q4

REPORT INFORMATION
  Report Type: Spontaneous
  Country: ZA (occurrence: ZA)
  Receive Date: 20151030
  Receipt Date: 20151030
  Transmission Date: 20160304
  Serious: Yes (Hospitalization)
  Sender: FDA-Public Use
  Company Number: ZA-SYMPLMED PHARMACEUTICALS-2015SYMPLMED000060

PATIENT

DRUGS (1)
  1. PERINDOPRIL UNICORN [Suspect]
     Active Substance: PERINDOPRIL
     Indication: HYPERTENSION
     Dosage: 4 MG, QD
     Route: 048
     Dates: start: 2012, end: 2012

REACTIONS (2)
  - Bronchospasm [Recovered/Resolved]
  - Cough [Recovered/Resolved]

NARRATIVE: CASE EVENT DATE: 2012
